FAERS Safety Report 15955354 (Version 1)
Quarter: 2019Q1

REPORT INFORMATION
  Report Type: Spontaneous
  Country: FR (occurrence: FR)
  Receive Date: 20190213
  Receipt Date: 20190213
  Transmission Date: 20190417
  Serious: Yes (Hospitalization)
  Sender: FDA-Public Use
  Company Number: FR-ACCORD-106724

PATIENT
  Age: 66 Year
  Sex: Female

DRUGS (1)
  1. FLUOROURACIL. [Suspect]
     Active Substance: FLUOROURACIL
     Indication: COLON CANCER
     Route: 042

REACTIONS (8)
  - Vomiting [Recovering/Resolving]
  - Enteritis [Recovering/Resolving]
  - Oesophagitis [Recovering/Resolving]
  - Lacrimation increased [Recovering/Resolving]
  - Alopecia [Recovering/Resolving]
  - Small intestinal obstruction [Recovering/Resolving]
  - Xerosis [Recovering/Resolving]
  - Mucosal inflammation [Recovering/Resolving]

NARRATIVE: CASE EVENT DATE: 201606
